FAERS Safety Report 5343132-6 (Version None)
Quarter: 2007Q2

REPORT INFORMATION
  Report Type: 
  Country: None (occurrence: None)
  Receive Date: 20070601
  Receipt Date: 20070525
  Transmission Date: 20071010
  Serious: No
  Sender: FDA-Public Use
  Company Number: SE-PFIZER INC-A203117

PATIENT
  Sex: Female

DRUGS (6)
  1. HYDROXYZINE HYDROCHLORIDE [Suspect]
     Indication: NEUROSIS
     Dates: start: 20000101, end: 20010426
  2. XANOR [Suspect]
     Indication: NEUROSIS
     Dates: start: 20000101, end: 20010426
  3. PAROXETINE [Suspect]
     Indication: NEUROSIS
     Dates: start: 20000101, end: 20010426
  4. ZOLPIDEM TARTRATE [Suspect]
     Indication: ILL-DEFINED DISORDER
     Dates: start: 20000101, end: 20010426
  5. LERGIGAN [Suspect]
     Dates: start: 20010430, end: 20010701
  6. PROPAVAN [Suspect]
     Dates: start: 20010430, end: 20010701

REACTIONS (2)
  - ABORTION SPONTANEOUS [None]
  - DRUG WITHDRAWAL SYNDROME [None]
